FAERS Safety Report 11003816 (Version 1)
Quarter: 2015Q2

REPORT INFORMATION
  Report Type: Spontaneous
  Country: US (occurrence: None)
  Receive Date: 20150408
  Receipt Date: 20150408
  Transmission Date: 20150821
  Serious: No
  Sender: FDA-Public Use
  Company Number: None

PATIENT
  Age: 63 Year
  Sex: Male

DRUGS (1)
  1. NEXAVAR [Suspect]
     Active Substance: SORAFENIB
     Indication: NEOPLASM MALIGNANT
     Route: 048
     Dates: start: 20150313, end: 20150326

REACTIONS (3)
  - Swelling face [None]
  - Dyspnoea [None]
  - Local swelling [None]

NARRATIVE: CASE EVENT DATE: 20150326
